FAERS Safety Report 8580543 (Version 6)
Quarter: 2012Q4

REPORT INFORMATION
  Report Type: Report from Study
  Country: US (occurrence: US)
  Receive Date: 20120525
  Receipt Date: 20121203
  Transmission Date: 20130627
  Serious: Yes (Hospitalization)
  Sender: FDA-Public Use
  Company Number: US-NOVOPROD-351772

PATIENT
  Age: 50 Year
  Sex: Female
  Weight: 60.2 kg

DRUGS (3)
  1. LIRAGLUTIDE FLEXPEN [Suspect]
     Indication: TYPE 2 DIABETES MELLITUS
     Dosage: 1.8 mg, qd
     Route: 058
     Dates: start: 20110808, end: 20120507
  2. LIRAGLUTIDE FLEXPEN [Suspect]
     Dosage: 1.8 mg, qd
     Route: 058
     Dates: start: 20120511, end: 20120518
  3. METFORMIN [Concomitant]
     Indication: TYPE 2 DIABETES MELLITUS
     Dosage: 2000 mg, qd
     Dates: start: 2008

REACTIONS (1)
  - Gastroenteritis [Recovered/Resolved]
